FAERS Safety Report 20626991 (Version 2)
Quarter: 2022Q2

REPORT INFORMATION
  Report Type: Spontaneous
  Country: JP (occurrence: JP)
  Receive Date: 20220323
  Receipt Date: 20220518
  Transmission Date: 20220721
  Serious: No
  Sender: FDA-Public Use
  Company Number: JP-GLAXOSMITHKLINE-JP2022JPN047946

PATIENT

DRUGS (5)
  1. SOTROVIMAB [Suspect]
     Active Substance: SOTROVIMAB
     Indication: COVID-19
     Dosage: UNK
     Dates: start: 20220315
  2. METOCLOPRAMIDE [Suspect]
     Active Substance: METOCLOPRAMIDE
     Dosage: AS NEEDED
     Dates: start: 20211005
  3. MAGNESIUM OXIDE [Suspect]
     Active Substance: MAGNESIUM OXIDE
     Dosage: 990 MG/DAY
     Dates: start: 20211019
  4. CARBAZOCHROME SODIUM SULFONATE [Suspect]
     Active Substance: CARBAZOCHROME SODIUM SULFONATE
     Dosage: 90 MG/DAY
     Dates: start: 20211119
  5. CALONAL [Suspect]
     Active Substance: ACETAMINOPHEN
     Dosage: 400 MG/DOSE, AS NEEDED
     Dates: start: 20220308

REACTIONS (1)
  - Exposure during pregnancy [Unknown]
